FAERS Safety Report 6388547-2 (Version None)
Quarter: 2009Q4

REPORT INFORMATION
  Report Type: 
  Country: None (occurrence: None)
  Receive Date: 20091005
  Receipt Date: 20090929
  Transmission Date: 20100525
  Serious: Yes (Death, Hospitalization)
  Sender: FDA-Public Use
  Company Number: NL-ROCHE-657990

PATIENT

DRUGS (5)
  1. CAPECITABINE [Suspect]
     Indication: GASTRIC CANCER
     Dosage: LAST DOSE PRIOR TO SAE: 18 SEP 2009, DAY 1-14 EVERY 3 WEEKS, AS PER PROTCOL
     Route: 048
     Dates: start: 20090910, end: 20090918
  2. BISOPROLOL [Concomitant]
     Route: 048
     Dates: start: 20090101
  3. RANITIDINE [Concomitant]
     Route: 048
     Dates: start: 20090101
  4. HYDROCHLOROTHIAZIDE [Concomitant]
     Route: 048
     Dates: start: 20090101
  5. PERINDOPRIL [Concomitant]
     Route: 048
     Dates: start: 20090101

REACTIONS (5)
  - BLOOD UREA INCREASED [None]
  - DIARRHOEA [None]
  - FEBRILE NEUTROPENIA [None]
  - MUCOSAL INFLAMMATION [None]
  - SUDDEN DEATH [None]
